FAERS Safety Report 11759825 (Version 1)
Quarter: 2015Q4

REPORT INFORMATION
  Report Type: Spontaneous
  Country: US (occurrence: US)
  Receive Date: 20151120
  Receipt Date: 20151120
  Transmission Date: 20160304
  Serious: No
  Sender: FDA-Public Use
  Company Number: US-ELI_LILLY_AND_COMPANY-US201210007309

PATIENT
  Sex: Female

DRUGS (1)
  1. FORTEO [Suspect]
     Active Substance: TERIPARATIDE
     Dosage: 20 UG, QD
     Route: 058
     Dates: start: 20111122, end: 201205

REACTIONS (4)
  - Bone pain [Recovered/Resolved]
  - Sleep disorder due to a general medical condition [Unknown]
  - Crying [Unknown]
  - Arthralgia [Recovered/Resolved]
